FAERS Safety Report 16541743 (Version 2)
Quarter: 2019Q3

REPORT INFORMATION
  Report Type: Spontaneous
  Country: DE (occurrence: DE)
  Receive Date: 20190708
  Receipt Date: 20190724
  Transmission Date: 20191004
  Serious: Yes (Hospitalization, Other)
  Sender: FDA-Public Use
  Company Number: DE-JNJFOC-20190700087

PATIENT
  Age: 22 Year
  Sex: Female

DRUGS (18)
  1. NEOSTIGMINE                        /00045903/ [Concomitant]
     Indication: ILEUS PARALYTIC
     Route: 041
     Dates: start: 2013
  2. CEFUROXIM                          /00454603/ [Concomitant]
     Active Substance: CEFUROXIME AXETIL
     Indication: URINARY TRACT INFECTION
     Route: 048
     Dates: start: 2013
  3. KEPPRA [Suspect]
     Active Substance: LEVETIRACETAM
     Route: 042
     Dates: start: 2013, end: 2013
  4. FOLSAN [Concomitant]
     Active Substance: FOLIC ACID
     Indication: PROPHYLAXIS OF NEURAL TUBE DEFECT
     Route: 048
  5. LAMOTRIGINE. [Concomitant]
     Active Substance: LAMOTRIGINE
     Indication: IDIOPATHIC GENERALISED EPILEPSY
     Dosage: 100 MG, 2X/DAY (BID)
     Route: 048
     Dates: start: 2008, end: 201305
  6. VITAMIN B6 [Concomitant]
     Active Substance: PYRIDOXINE HYDROCHLORIDE
     Indication: VITAMIN B6 DEFICIENCY
     Route: 048
     Dates: start: 2013
  7. LORAZEPAM. [Concomitant]
     Active Substance: LORAZEPAM
     Indication: IDIOPATHIC GENERALISED EPILEPSY
     Route: 042
     Dates: start: 20130624
  8. AMPICILLIN                         /00000504/ [Concomitant]
     Indication: URINARY TRACT INFECTION
     Route: 048
     Dates: start: 2013
  9. KEPPRA [Suspect]
     Active Substance: LEVETIRACETAM
     Dosage: 1000 MG, 3X/DAY (TID)
     Route: 048
     Dates: start: 2013
  10. ERGENYL CHRONO [Suspect]
     Active Substance: VALPROIC ACID
     Indication: IDIOPATHIC GENERALISED EPILEPSY
     Dosage: 1200 MG, 3X/DAY (TID)
     Route: 048
     Dates: start: 20130625
  11. FRISIUM [Suspect]
     Active Substance: CLOBAZAM
     Indication: IDIOPATHIC GENERALISED EPILEPSY
     Dosage: 5 MG, 3X/DAY (TID)
     Route: 048
     Dates: start: 2013
  12. VITAMIN B12 [Concomitant]
     Active Substance: CYANOCOBALAMIN
     Indication: VITAMIN B12 DEFICIENCY
     Dosage: UNKNOWN DOSE ONCE EVERY MONTH
     Route: 030
     Dates: start: 2013
  13. PASPERTIN                          /00041902/ [Concomitant]
     Active Substance: METOCLOPRAMIDE HYDROCHLORIDE
     Indication: ILEUS PARALYTIC
     Route: 042
     Dates: start: 2013
  14. KEPPRA [Suspect]
     Active Substance: LEVETIRACETAM
     Indication: IDIOPATHIC GENERALISED EPILEPSY
     Dosage: 250 MG, 3X/DAY (TID)
     Route: 048
     Dates: start: 2013, end: 2013
  15. PROPOFOL. [Concomitant]
     Active Substance: PROPOFOL
     Indication: IDIOPATHIC GENERALISED EPILEPSY
     Route: 042
     Dates: start: 20130625, end: 20130703
  16. MIDAZOLAM [Concomitant]
     Active Substance: MIDAZOLAM HYDROCHLORIDE
     Indication: IDIOPATHIC GENERALISED EPILEPSY
     Route: 042
     Dates: start: 20130625, end: 20130703
  17. TOPAMAX [Suspect]
     Active Substance: TOPIRAMATE
     Indication: IDIOPATHIC GENERALISED EPILEPSY
     Dosage: 100 MG, 2X/DAY (BID)
     Route: 048
     Dates: start: 2013, end: 2013
  18. DIAZEPAM. [Concomitant]
     Active Substance: DIAZEPAM
     Indication: IDIOPATHIC GENERALISED EPILEPSY
     Route: 042
     Dates: start: 2013

REACTIONS (7)
  - Drug ineffective [Unknown]
  - Ileus paralytic [Unknown]
  - Seizure [Unknown]
  - Premature delivery [Unknown]
  - Hypovitaminosis [Not Recovered/Not Resolved]
  - Urinary tract infection [Unknown]
  - Maternal exposure during pregnancy [Recovered/Resolved]

NARRATIVE: CASE EVENT DATE: 2013
